FAERS Safety Report 9994700 (Version 3)
Quarter: 2014Q2

REPORT INFORMATION
  Report Type: Report from Study
  Country: JP (occurrence: JP)
  Receive Date: 20140311
  Receipt Date: 20140506
  Transmission Date: 20141212
  Serious: Yes (Death, Hospitalization)
  Sender: FDA-Public Use
  Company Number: JP-SHIRE-JP201400291

PATIENT
  Age: 26 Year
  Sex: Male

DRUGS (9)
  1. IDURSULFASE [Suspect]
     Indication: MUCOPOLYSACCHARIDOSIS II
     Dosage: 30 MG, 1X/WEEK
     Route: 041
     Dates: start: 20090609, end: 20140114
  2. SELENICA-R [Concomitant]
     Indication: PRODUCT USED FOR UNKNOWN INDICATION
     Dosage: UNK, UNKNOWN
     Route: 065
  3. DEPAKENE                           /00228501/ [Concomitant]
     Indication: PRODUCT USED FOR UNKNOWN INDICATION
     Dosage: UNK, UNKNOWN
     Route: 065
     Dates: start: 20111002
  4. MUCODYNE [Concomitant]
     Indication: PRODUCT USED FOR UNKNOWN INDICATION
     Dosage: UNK, UNKNOWN
     Route: 065
     Dates: start: 20120123
  5. HOKUNALIN                          /00654901/ [Concomitant]
     Indication: PRODUCT USED FOR UNKNOWN INDICATION
     Dosage: UNK, UNKNOWN
     Route: 065
     Dates: start: 20101129
  6. FLAGYL                             /00012501/ [Concomitant]
     Indication: INFECTION
     Dosage: UNK, UNKNOWN
     Route: 065
     Dates: start: 20140212
  7. VITAMEDIN                          /00274301/ [Concomitant]
     Indication: NEURALGIA
     Dosage: UNK, UNKNOWN
     Route: 065
     Dates: start: 20140119
  8. LACTEC                             /00490001/ [Concomitant]
     Indication: FLUID REPLACEMENT
     Dosage: UNK, UNKNOWN
     Route: 065
     Dates: start: 20140119
  9. SOL-MELCORT [Concomitant]
     Indication: CIRCULATORY COLLAPSE
     Dosage: UNK, UNKNOWN
     Route: 065
     Dates: start: 20140120

REACTIONS (3)
  - Mucopolysaccharidosis II [Fatal]
  - Condition aggravated [Fatal]
  - Respiratory arrest [Recovered/Resolved]
